FAERS Safety Report 20149988 (Version 4)
Quarter: 2022Q1

REPORT INFORMATION
  Report Type: Spontaneous
  Country: VE (occurrence: None)
  Receive Date: 20211206
  Receipt Date: 20220203
  Transmission Date: 20220423
  Serious: Yes (Death, Life-Threatening, Other)
  Sender: FDA-Public Use
  Company Number: VE-ROCHE-2968703

PATIENT
  Age: 79 Year
  Sex: Male

DRUGS (6)
  1. ACTEMRA [Suspect]
     Active Substance: TOCILIZUMAB
     Indication: Product used for unknown indication
     Dosage: 50 CC SOLVED IN 150ML; FREQUENCY WERE NOT REPORTED
     Route: 042
     Dates: start: 20211124, end: 20211124
  2. MEROPENEM [Concomitant]
     Active Substance: MEROPENEM
  3. LINEZOLID [Concomitant]
     Active Substance: LINEZOLID
  4. LORATYN [Concomitant]
  5. ENOXAPARIN SODIUM [Concomitant]
     Active Substance: ENOXAPARIN SODIUM
  6. ACETYLCYSTEINE [Concomitant]
     Active Substance: ACETYLCYSTEINE

REACTIONS (5)
  - Death [Fatal]
  - Respiratory distress [Unknown]
  - Product counterfeit [Unknown]
  - Hypertension [Unknown]
  - Diarrhoea [Unknown]

NARRATIVE: CASE EVENT DATE: 20211124
